FAERS Safety Report 9361912 (Version 1)
Quarter: 2013Q2

REPORT INFORMATION
  Report Type: Report from Study
  Country: US (occurrence: US)
  Receive Date: 20130621
  Receipt Date: 20130621
  Transmission Date: 20140414
  Serious: Yes (Hospitalization, Other)
  Sender: FDA-Public Use
  Company Number: US-ABBOTT-13P-163-1105177-00

PATIENT
  Age: 39 Year
  Sex: Female

DRUGS (2)
  1. HUMIRA [Suspect]
     Indication: PSORIASIS
     Dates: start: 2005, end: 2006
  2. HUMIRA [Suspect]
     Dates: start: 2007

REACTIONS (6)
  - Intervertebral disc degeneration [Unknown]
  - Cholecystectomy [Recovered/Resolved]
  - Headache [Recovering/Resolving]
  - Injection site pruritus [Recovering/Resolving]
  - Stress [Unknown]
  - Pruritus [Recovering/Resolving]
